FAERS Safety Report 5986936-9 (Version None)
Quarter: 2008Q4

REPORT INFORMATION
  Report Type: 
  Country: None (occurrence: None)
  Receive Date: 20081209
  Receipt Date: 20081125
  Transmission Date: 20090506
  Serious: Yes (Hospitalization)
  Sender: FDA-Public Use
  Company Number: US-AMGEN-US320865

PATIENT
  Sex: Male

DRUGS (7)
  1. NPLATE [Suspect]
     Indication: IDIOPATHIC THROMBOCYTOPENIC PURPURA
     Dates: start: 20081009
  2. COREG [Concomitant]
  3. SPIRONOLACTONE W/ HYDROCHLOROTHIAZIDE [Concomitant]
  4. ASPIRIN [Concomitant]
  5. ASCORBIC ACID [Concomitant]
  6. VYTORIN [Concomitant]
  7. FINASTERIDE [Concomitant]

REACTIONS (1)
  - ANGINA PECTORIS [None]
